FAERS Safety Report 21491278 (Version 2)
Quarter: 2022Q4

REPORT INFORMATION
  Report Type: Spontaneous
  Country: FR (occurrence: FR)
  Receive Date: 20221021
  Receipt Date: 20221212
  Transmission Date: 20230113
  Serious: Yes (Death, Hospitalization, Other)
  Sender: FDA-Public Use
  Company Number: FR-Accord-282482

PATIENT
  Age: 14 Year
  Sex: Male

DRUGS (2)
  1. AZACITIDINE [Suspect]
     Active Substance: AZACITIDINE
     Indication: Acute leukaemia
     Dosage: 75 MG/M2/DAY FOR 7 DAYS IN A CYCLE
  2. VENETOCLAX [Suspect]
     Active Substance: VENETOCLAX
     Indication: Acute leukaemia
     Dosage: 100-400 MG/DAY FOR 3 DAYS ESCALATED TO 400 MG/DAY FOR 28 DAYS IN A CYCLE

REACTIONS (3)
  - Bronchopulmonary aspergillosis [Recovered/Resolved]
  - Febrile neutropenia [Recovered/Resolved]
  - Condition aggravated [Fatal]
